FAERS Safety Report 9155785 (Version 6)
Quarter: 2014Q1

REPORT INFORMATION
  Report Type: Spontaneous
  Country: US (occurrence: US)
  Receive Date: 20130311
  Receipt Date: 20140109
  Transmission Date: 20141002
  Serious: Yes (Hospitalization, Disabling, Other)
  Sender: FDA-Public Use
  Company Number: US-009507513-1303USA003924

PATIENT
  Sex: Female
  Weight: 63.4 kg

DRUGS (11)
  1. FOSAMAX [Suspect]
     Indication: OSTEOPOROSIS
     Dosage: 35 MG, UNK
     Route: 048
     Dates: start: 20040101, end: 20080401
  2. FOSAMAX [Suspect]
     Dosage: 70 MG, QW
     Route: 048
  3. FOSAMAX PLUS D [Suspect]
     Indication: OSTEOPOROSIS
     Dosage: 70 MG, UNK
     Route: 048
     Dates: start: 20040101, end: 20080401
  4. VITAMIN D (UNSPECIFIED) [Concomitant]
     Dosage: UNK
     Dates: start: 1990
  5. CALCIUM (UNSPECIFIED) [Concomitant]
     Dosage: 1800 MG, DAILY
     Dates: start: 1990
  6. METHOTREXATE [Concomitant]
     Indication: RHEUMATOID ARTHRITIS
     Dosage: 25 MG, WEEKLY
     Dates: start: 1972
  7. ENBREL [Concomitant]
     Indication: RHEUMATOID ARTHRITIS
     Dosage: 25 MG, TWICE WEEKLY
     Dates: start: 2005
  8. PLAQUENIL [Concomitant]
     Indication: RHEUMATOID ARTHRITIS
     Dosage: 200 MG, BID
     Dates: start: 2008
  9. VOLTAREN [Concomitant]
     Indication: RHEUMATOID ARTHRITIS
     Dosage: 75 MG, BID
     Dates: start: 2008
  10. PREDNISONE [Concomitant]
     Indication: RHEUMATOID ARTHRITIS
     Dosage: 5 MG, Q DAILY ORAL AND IV
     Dates: start: 1980
  11. MIACALCIN [Concomitant]
     Indication: OSTEOPOROSIS

REACTIONS (32)
  - Femur fracture [Recovered/Resolved with Sequelae]
  - Intramedullary rod insertion [Unknown]
  - Femur fracture [Recovered/Resolved]
  - Intramedullary rod insertion [Unknown]
  - Ankle arthroplasty [Unknown]
  - Arthrodesis [Unknown]
  - Joint arthroplasty [Unknown]
  - Surgery [Unknown]
  - Haemoglobin decreased [Unknown]
  - Haemorrhagic anaemia [Unknown]
  - Fracture nonunion [Unknown]
  - Arthrodesis [Unknown]
  - Joint dislocation reduction [Unknown]
  - Ankle operation [Unknown]
  - Bone graft [Unknown]
  - Tenotomy [Unknown]
  - Breast cancer [Unknown]
  - Low turnover osteopathy [Unknown]
  - Depression [Unknown]
  - Malabsorption [Unknown]
  - Fibula fracture [Unknown]
  - Impaired healing [Unknown]
  - Impaired healing [Unknown]
  - Menorrhagia [Unknown]
  - Osteopenia [Unknown]
  - Joint surgery [Unknown]
  - Ligament rupture [Unknown]
  - Osteoarthritis [Unknown]
  - Jaw operation [Unknown]
  - Bursitis [Unknown]
  - Blood alkaline phosphatase decreased [Unknown]
  - Red blood cell count decreased [Unknown]
